FAERS Safety Report 7062286-7 (Version None)
Quarter: 2010Q4

REPORT INFORMATION
  Report Type: 
  Country: None (occurrence: None)
  Receive Date: 20101026
  Receipt Date: 20101018
  Transmission Date: 20110411
  Serious: Yes (Other)
  Sender: FDA-Public Use
  Company Number: CHPA2010US16407

PATIENT
  Sex: Male
  Weight: 99.773 kg

DRUGS (3)
  1. 4 WAY NASAL DECONGESTANT MOISTURIZING RELIEF (NCH) [Suspect]
     Indication: NASAL CONGESTION
     Dosage: 1 SPRAY EACH NOSTRIL, BID
     Route: 045
  2. 4 WAY NASAL DECONGESTANT MOISTURIZING RELIEF (NCH) [Suspect]
     Dosage: UNK, UNK
     Route: 045
  3. 4 WAY FAST ACTING NASAL SPRAY (NCH) [Suspect]
     Indication: NASAL CONGESTION
     Dosage: UNK, 4 - 5 TIMES A DAY
     Route: 045

REACTIONS (5)
  - DEPRESSED MOOD [None]
  - DRUG DEPENDENCE [None]
  - INSOMNIA [None]
  - INTENTIONAL DRUG MISUSE [None]
  - RHINORRHOEA [None]
